FAERS Safety Report 22002776 (Version 1)
Quarter: 2023Q1

REPORT INFORMATION
  Report Type: Spontaneous
  Country: US (occurrence: US)
  Receive Date: 20230217
  Receipt Date: 20230217
  Transmission Date: 20230417
  Serious: No
  Sender: FDA-Public Use
  Company Number: US-TOLMAR, INC.-23US038869

PATIENT
  Age: 78 Year
  Sex: Male

DRUGS (1)
  1. KETOCONAZOLE [Suspect]
     Active Substance: KETOCONAZOLE
     Indication: Psoriasis
     Dosage: UNK, QD
     Route: 003
     Dates: start: 202302

REACTIONS (2)
  - Off label use [Unknown]
  - Product physical issue [Unknown]

NARRATIVE: CASE EVENT DATE: 20230201
